FAERS Safety Report 19416383 (Version 1)
Quarter: 2021Q2

REPORT INFORMATION
  Report Type: Spontaneous
  Country: US (occurrence: US)
  Receive Date: 20210615
  Receipt Date: 20210615
  Transmission Date: 20210717
  Serious: No
  Sender: FDA-Public Use
  Company Number: US-ORGANON-O2106USA000206

PATIENT
  Age: 61 Year
  Sex: Female
  Weight: 73.9 kg

DRUGS (3)
  1. COZAAR [Suspect]
     Active Substance: LOSARTAN POTASSIUM
     Dosage: UNK
     Route: 048
     Dates: end: 202105
  2. TYVASO [Suspect]
     Active Substance: TREPROSTINIL
     Indication: PULMONARY ARTERIAL HYPERTENSION
     Dosage: CONCENTRATION OF 0.6 MG/ML; DOSE: 18?54 MICROGRAM (3?9 BREATHS), FOUR TIMES A DAY (QID)
     Dates: start: 20210510
  3. DILTIZEM [Concomitant]
     Dosage: UNK

REACTIONS (4)
  - Blood pressure decreased [Unknown]
  - Headache [Recovering/Resolving]
  - Dizziness [Recovering/Resolving]
  - Agitation [Recovering/Resolving]

NARRATIVE: CASE EVENT DATE: 202105
